FAERS Safety Report 12278606 (Version 2)
Quarter: 2016Q2

REPORT INFORMATION
  Report Type: Spontaneous
  Country: US (occurrence: US)
  Receive Date: 20160418
  Receipt Date: 20160516
  Transmission Date: 20160815
  Serious: No
  Sender: FDA-Public Use
  Company Number: US-PFIZER INC-2016177395

PATIENT
  Age: 46 Year
  Sex: Female
  Weight: 45 kg

DRUGS (9)
  1. RANITIDINE. [Concomitant]
     Active Substance: RANITIDINE
     Indication: ABDOMINAL DISCOMFORT
     Dosage: 300 MG, 2X/DAY, ONCE IN THE MORNING AND ONCE AT NIGHT
     Route: 048
     Dates: start: 20160309
  2. CLONAZEPAM. [Concomitant]
     Active Substance: CLONAZEPAM
     Indication: MUSCLE TIGHTNESS
     Dosage: 1 G, ONE AT NIGHT
     Route: 048
  3. FENTANYL. [Concomitant]
     Active Substance: FENTANYL
     Indication: PANCREATITIS
     Dosage: 75 MG, PATCH, TORSO, EVERY 48 HOURS
     Dates: start: 1999
  4. FENTANYL. [Concomitant]
     Active Substance: FENTANYL
     Indication: PAIN
  5. LYRICA [Suspect]
     Active Substance: PREGABALIN
     Indication: INTERVERTEBRAL DISC DEGENERATION
  6. FENTANYL. [Concomitant]
     Active Substance: FENTANYL
     Indication: PAIN
  7. LYRICA [Suspect]
     Active Substance: PREGABALIN
     Indication: KYPHOSIS
  8. LYRICA [Suspect]
     Active Substance: PREGABALIN
     Indication: BONE DISORDER
     Dosage: 75MG, 3 TIMES A DAY, SOMETIMES 2, ALL DEPENDS IF SHE IS AWAKE OR NOT
     Route: 048
  9. LYRICA [Suspect]
     Active Substance: PREGABALIN
     Indication: ARTHRITIS

REACTIONS (3)
  - Nausea [Not Recovered/Not Resolved]
  - Product use issue [Unknown]
  - Intentional product misuse [Not Recovered/Not Resolved]
